FAERS Safety Report 7886560-7 (Version None)
Quarter: 2011Q4

REPORT INFORMATION
  Report Type: 
  Country: None (occurrence: None)
  Receive Date: 20111102
  Receipt Date: 20110707
  Transmission Date: 20120403
  Serious: No
  Sender: FDA-Public Use
  Company Number: US-AMGEN-KDL182987

PATIENT
  Age: 52 Year
  Sex: Female

DRUGS (4)
  1. ALPRAZOLAM [Concomitant]
  2. ENBREL [Suspect]
     Indication: ANKYLOSING SPONDYLITIS
     Dosage: 50 MG, QWK
     Dates: start: 20050701
  3. ENBREL [Suspect]
     Indication: PSORIATIC ARTHROPATHY
     Dosage: 25 MG, 2 TIMES/WK
     Route: 058
     Dates: start: 20050701
  4. BUPROPION HCL [Concomitant]

REACTIONS (11)
  - HYPOAESTHESIA [None]
  - ANXIETY [None]
  - INJECTION SITE SWELLING [None]
  - INJECTION SITE PRURITUS [None]
  - SCIATICA [None]
  - LOWER RESPIRATORY TRACT INFECTION [None]
  - BACK PAIN [None]
  - URINARY TRACT INFECTION [None]
  - PARAESTHESIA [None]
  - INJECTION SITE ERYTHEMA [None]
  - INJECTION SITE WARMTH [None]
